FAERS Safety Report 8389076-7 (Version None)
Quarter: 2012Q2

REPORT INFORMATION
  Report Type: 
  Country: None (occurrence: None)
  Receive Date: 20120528
  Receipt Date: 20120517
  Transmission Date: 20120825
  Serious: Yes (Other)
  Sender: FDA-Public Use
  Company Number: PHEH2012US010338

PATIENT

DRUGS (1)
  1. DESFERAL [Suspect]

REACTIONS (3)
  - FLUSHING [None]
  - HYPOTENSION [None]
  - URTICARIA [None]
